FAERS Safety Report 9234679 (Version 1)
Quarter: 2013Q2

REPORT INFORMATION
  Report Type: Spontaneous
  Country: US (occurrence: US)
  Receive Date: 20130416
  Receipt Date: 20130416
  Transmission Date: 20140414
  Serious: No
  Sender: FDA-Public Use
  Company Number: US-ASTRAZENECA-2013SE18427

PATIENT
  Age: 68 Year
  Sex: Female
  Weight: 63.5 kg

DRUGS (4)
  1. PRILOSEC [Suspect]
     Route: 048
  2. ASPIRIN [Concomitant]
  3. NSAIDS [Concomitant]
  4. MANY OTHER MEDICATIONS [Concomitant]

REACTIONS (3)
  - Inflammation [Unknown]
  - Haematochezia [Unknown]
  - Intentional drug misuse [Unknown]
